FAERS Safety Report 25984635 (Version 2)
Quarter: 2025Q4

REPORT INFORMATION
  Report Type: Spontaneous
  Country: US (occurrence: None)
  Receive Date: 20251031
  Receipt Date: 20251201
  Transmission Date: 20260117
  Serious: No
  Sender: APOTEX
  Company Number: US-APOTEX-2025AP031187

PATIENT
  Age: 75 Year
  Sex: Male
  Weight: 49.9 kg

DRUGS (1)
  1. PRUCALOPRIDE [Suspect]
     Active Substance: PRUCALOPRIDE
     Indication: Gastrointestinal hypomotility
     Dosage: 1 DOSAGE FORM, QD
     Route: 065
     Dates: start: 20251009

REACTIONS (2)
  - Increased appetite [Unknown]
  - Drug effect less than expected [Unknown]
